FAERS Safety Report 9442290 (Version 1)
Quarter: 2013Q3

REPORT INFORMATION
  Report Type: Spontaneous
  Country: US (occurrence: US)
  Receive Date: 20130806
  Receipt Date: 20130806
  Transmission Date: 20140515
  Serious: No
  Sender: FDA-Public Use
  Company Number: US-GLAXOSMITHKLINE-A0989388A

PATIENT
  Age: 44 Year
  Sex: Female

DRUGS (8)
  1. ADVAIR [Suspect]
     Indication: CHRONIC OBSTRUCTIVE PULMONARY DISEASE
     Dosage: 1PUFF PER DAY
     Route: 055
     Dates: start: 2010
  2. KEPPRA [Concomitant]
  3. PRIMIDONE [Concomitant]
  4. ATIVAN [Concomitant]
  5. IRON [Concomitant]
  6. HYDROCHLOROTHIAZIDE [Concomitant]
  7. POTASSIUM [Concomitant]
  8. LOPRESSOR [Concomitant]

REACTIONS (3)
  - Pain in extremity [Not Recovered/Not Resolved]
  - Muscular weakness [Unknown]
  - Sensation of blood flow [Unknown]
